FAERS Safety Report 9155594 (Version 1)
Quarter: 2013Q1

REPORT INFORMATION
  Report Type: Spontaneous
  Country: GB (occurrence: GB)
  Receive Date: 20130311
  Receipt Date: 20130311
  Transmission Date: 20140127
  Serious: Yes (Life-Threatening)
  Sender: FDA-Public Use
  Company Number: GB-GLAXOSMITHKLINE-B0872161A

PATIENT
  Age: 70 Year
  Sex: Male
  Weight: 58 kg

DRUGS (3)
  1. BECLOMETASONE [Suspect]
     Indication: ASTHMA
     Route: 055
     Dates: start: 20100407, end: 20100407
  2. SALBUTAMOL [Concomitant]
     Indication: ASTHMA
     Route: 055
     Dates: start: 200605
  3. IPRATROPIUM BROMIDE [Concomitant]
     Indication: ASTHMA
     Route: 055
     Dates: start: 200605

REACTIONS (2)
  - Psychotic disorder [Recovered/Resolved]
  - Hallucinations, mixed [Recovered/Resolved]
